FAERS Safety Report 9392843 (Version 1)
Quarter: 2013Q3

REPORT INFORMATION
  Report Type: Spontaneous
  Country: US (occurrence: US)
  Receive Date: 20130710
  Receipt Date: 20130710
  Transmission Date: 20140515
  Serious: No
  Sender: FDA-Public Use
  Company Number: US-BAYER-2013-083619

PATIENT
  Age: 18 Month
  Sex: Female
  Weight: 12 kg

DRUGS (1)
  1. ALEVE CAPLET [Suspect]
     Dosage: UNK UNK, ONCE
     Route: 048
     Dates: start: 20130702, end: 20130702

REACTIONS (2)
  - Eructation [Recovered/Resolved]
  - Accidental exposure to product by child [None]
